FAERS Safety Report 14263310 (Version 7)
Quarter: 2019Q2

REPORT INFORMATION
  Report Type: Spontaneous
  Country: IT (occurrence: IT)
  Receive Date: 20171208
  Receipt Date: 20190410
  Transmission Date: 20190711
  Serious: Yes (Death, Life-Threatening, Hospitalization, Other)
  Sender: FDA-Public Use
  Company Number: IT-AUROBINDO-AUR-APL-2017-45056

PATIENT

DRUGS (19)
  1. FENTANYL. [Interacting]
     Active Substance: FENTANYL
     Indication: PAIN IN EXTREMITY
     Dosage: 100 MICROGRAM  TABLET
     Route: 065
     Dates: start: 2015, end: 20150602
  2. FENTANYL. [Interacting]
     Active Substance: FENTANYL
     Dosage: 200 MICROGRAM
     Route: 065
     Dates: start: 20150521
  3. LEVOFLOXACIN. [Interacting]
     Active Substance: LEVOFLOXACIN
     Indication: STAPHYLOCOCCAL SKIN INFECTION
     Dosage: 125 MILLIGRAM MAINTENANCE DOSE
     Route: 048
     Dates: start: 20150522
  4. FENTANYL. [Interacting]
     Active Substance: FENTANYL
     Dosage: 25 DOSAGE FORM, 25 UG/HR, UNK
     Route: 062
     Dates: start: 20150521
  5. RIFAMPICIN [Interacting]
     Active Substance: RIFAMPIN
     Indication: STAPHYLOCOCCAL SKIN INFECTION
     Dosage: 300 MG, UNK
     Route: 042
     Dates: start: 20150521
  6. FENTANYL. [Interacting]
     Active Substance: FENTANYL
     Indication: ANGIOPATHY
     Dosage: 200 MICROGRAM TABLET
     Route: 065
     Dates: start: 2015, end: 20150602
  7. FENTANYL. [Interacting]
     Active Substance: FENTANYL
     Dosage: UNK
     Route: 065
     Dates: start: 20150602, end: 20150602
  8. FENTANYL. [Interacting]
     Active Substance: FENTANYL
     Dosage: 200 MICROGRAM
     Route: 048
     Dates: start: 20150101
  9. LEVOFLOXACIN. [Suspect]
     Active Substance: LEVOFLOXACIN
     Indication: STAPHYLOCOCCAL INFECTION
     Dosage: 500 MILLIGRAM LOADING DOSE ; IN TOTAL
     Route: 048
     Dates: start: 20150521, end: 20150521
  10. LEVOFLOXACIN. [Interacting]
     Active Substance: LEVOFLOXACIN
     Dosage: 125 MG, UNK
     Route: 048
  11. FENTANYL. [Interacting]
     Active Substance: FENTANYL
     Dosage: 100 MCG 1 TABLET UPGRADEABLE TO 200 MCG.TRANSMUCOSAL ORAL
     Route: 048
     Dates: start: 20150602, end: 20150602
  12. FENTANYL. [Interacting]
     Active Substance: FENTANYL
     Indication: PROCEDURAL PAIN
     Dosage: 12 MICROGRAM HOURLY
     Route: 062
     Dates: start: 20150521, end: 20150528
  13. FENTANYL. [Interacting]
     Active Substance: FENTANYL
     Dosage: 100 MICROGRAM
     Route: 065
     Dates: start: 20150521
  14. VANCOMYCIN [Interacting]
     Active Substance: VANCOMYCIN
     Indication: STAPHYLOCOCCAL INFECTION
     Dosage: 500 MILLIGRAM, CYCLICAL MAINTENANCE DOSE; AT THE END OF DIALYSIS
     Route: 042
     Dates: start: 20150522
  15. VANCOMYCIN [Interacting]
     Active Substance: VANCOMYCIN
     Dosage: 1 G, UNK
     Route: 065
     Dates: start: 20150521, end: 20150521
  16. VANCOMYCIN [Interacting]
     Active Substance: VANCOMYCIN
     Dosage: UNK, BY A SWAB APPLIED TO A LEFT FOOT ULCER POSITIVE FOR STAPHYLOCOCCUS AUREUS
     Route: 061
  17. RIFAMPICIN [Interacting]
     Active Substance: RIFAMPIN
     Indication: STAPHYLOCOCCAL INFECTION
  18. FENTANYL. [Interacting]
     Active Substance: FENTANYL
     Indication: ISCHAEMIC LIMB PAIN
     Dosage: 25 MICROGRAM HOURLY
     Route: 062
     Dates: start: 20150528, end: 20150602
  19. FENTANYL. [Interacting]
     Active Substance: FENTANYL
     Dosage: 300 MILLIGRAM, ONCE A DAY
     Route: 042
     Dates: start: 20150521

REACTIONS (18)
  - Prescribed overdose [Fatal]
  - Sepsis [Fatal]
  - Status epilepticus [Recovered/Resolved]
  - Depressed level of consciousness [Recovered/Resolved]
  - Pyrexia [Fatal]
  - Drug interaction [Unknown]
  - Sopor [Recovered/Resolved]
  - Hallucination [Recovered/Resolved]
  - Altered state of consciousness [Recovered/Resolved]
  - Miosis [Recovered/Resolved]
  - Tremor [Recovered/Resolved]
  - Toxicity to various agents [Fatal]
  - Drug ineffective [Unknown]
  - Somnolence [Recovered/Resolved]
  - Off label use [Unknown]
  - Generalised non-convulsive epilepsy [Fatal]
  - Overdose [Unknown]
  - Therapy naive [Unknown]

NARRATIVE: CASE EVENT DATE: 20150206
